FAERS Safety Report 18971464 (Version 1)
Quarter: 2021Q1

REPORT INFORMATION
  Report Type: Other
  Country: DE (occurrence: DE)
  Receive Date: 20210304
  Receipt Date: 20210304
  Transmission Date: 20210420
  Serious: Yes (Hospitalization, Other)
  Sender: FDA-Public Use
  Company Number: DE-VALIDUS PHARMACEUTICALS LLC-DE-2021VAL000139

PATIENT

DRUGS (3)
  1. FUROSEMIDE. [Suspect]
     Active Substance: FUROSEMIDE
     Indication: PRODUCT USED FOR UNKNOWN INDICATION
     Dosage: UNK
     Route: 065
  2. PREDNISOLONE. [Suspect]
     Active Substance: PREDNISOLONE
     Indication: NEPHROTIC SYNDROME
     Dosage: 15MG ? 15MG ? 10MG
     Route: 048
     Dates: start: 20200410, end: 20200512
  3. CORTISONE [Concomitant]
     Active Substance: CORTISONE
     Indication: PRODUCT USED FOR UNKNOWN INDICATION
     Dosage: UNK

REACTIONS (8)
  - Treatment noncompliance [Unknown]
  - Proteinuria [Unknown]
  - Hypoalbuminaemia [Unknown]
  - Nephrotic syndrome [Unknown]
  - Ascites [Unknown]
  - Product administration interrupted [Unknown]
  - Oedema [Unknown]
  - Product administration error [Unknown]

NARRATIVE: CASE EVENT DATE: 20200513
